FAERS Safety Report 6213361-8 (Version None)
Quarter: 2009Q2

REPORT INFORMATION
  Report Type: 
  Country: None (occurrence: None)
  Receive Date: 20090603
  Receipt Date: 20090529
  Transmission Date: 20091009
  Serious: Yes (Life-Threatening)
  Sender: FDA-Public Use
  Company Number: IT-GILEAD-2009-0021345

PATIENT
  Sex: Female

DRUGS (9)
  1. TRUVADA [Suspect]
     Indication: HIV INFECTION
     Route: 048
     Dates: start: 20061101, end: 20090226
  2. ACIDUM ACETYLSALICYLICUM [Concomitant]
     Route: 048
     Dates: start: 20061101, end: 20090201
  3. FUROSEMIDE [Concomitant]
     Route: 048
  4. ACIDUM ALENDRONICUM [Concomitant]
     Route: 048
     Dates: start: 20080601, end: 20090201
  5. KALETRA [Concomitant]
     Route: 048
     Dates: start: 20061101, end: 20090226
  6. DEPAKOTE [Concomitant]
     Route: 048
     Dates: start: 20061101, end: 20090401
  7. OMEPRAZOLE [Concomitant]
     Dates: start: 20061101
  8. CALCIUM LEVOFOLINATE [Concomitant]
     Dates: start: 20061101, end: 20090201
  9. COTRIMOXAZOLE [Concomitant]
     Dates: start: 20060501, end: 20090101

REACTIONS (6)
  - FANCONI SYNDROME ACQUIRED [None]
  - HYPOCALCAEMIA [None]
  - HYPOKALAEMIA [None]
  - HYPOPHOSPHATAEMIA [None]
  - METABOLIC ACIDOSIS [None]
  - RENAL TUBULAR NECROSIS [None]
